FAERS Safety Report 4835465-4 (Version None)
Quarter: 2005Q4

REPORT INFORMATION
  Report Type: 
  Country: None (occurrence: None)
  Receive Date: 20051122
  Receipt Date: 20051122
  Transmission Date: 20060501
  Serious: Yes (Hospitalization)
  Sender: FDA-Public Use
  Company Number: None

PATIENT
  Sex: Male

DRUGS (1)
  1. DRIXINE NASAL SOLUTION [Suspect]
     Dosage: NASAL SPRAY
     Route: 045

REACTIONS (2)
  - EPISTAXIS [None]
  - PROCEDURAL PAIN [None]
